FAERS Safety Report 10748990 (Version 2)
Quarter: 2015Q1

REPORT INFORMATION
  Report Type: Report from Study
  Country: IT (occurrence: IT)
  Receive Date: 20150129
  Receipt Date: 20150304
  Transmission Date: 20150721
  Serious: Yes (Other)
  Sender: FDA-Public Use
  Company Number: IT-GILEAD-2015-0133668

PATIENT
  Sex: Male
  Weight: 70 kg

DRUGS (4)
  1. SELECTIN                           /00880402/ [Concomitant]
     Indication: HYPERCHOLESTEROLAEMIA
     Dosage: 1 DF, UNK
     Route: 048
     Dates: start: 20090522
  2. TENOFOVIR DISOPROXIL FUMARATE [Suspect]
     Active Substance: TENOFOVIR DISOPROXIL FUMARATE
     Indication: HIV INFECTION
     Dosage: 1 DF, UNK
     Route: 048
     Dates: start: 20050819, end: 20090619
  3. NORVIR [Suspect]
     Active Substance: RITONAVIR
     Indication: HIV INFECTION
     Dosage: 100 MG, UNK
     Route: 048
     Dates: start: 20050819
  4. REYATAZ [Suspect]
     Active Substance: ATAZANAVIR SULFATE
     Indication: HIV INFECTION
     Dosage: 300 MG, UNK
     Route: 048
     Dates: start: 20050819

REACTIONS (1)
  - Osteoporosis [Unknown]
